FAERS Safety Report 6291987-3 (Version None)
Quarter: 2009Q3

REPORT INFORMATION
  Report Type: 
  Country: None (occurrence: None)
  Receive Date: 20090729
  Receipt Date: 20090720
  Transmission Date: 20100115
  Serious: Yes (Hospitalization)
  Sender: FDA-Public Use
  Company Number: 2009AL001963

PATIENT
  Age: 53 Year
  Sex: Female

DRUGS (23)
  1. DIGOXIN [Suspect]
     Dosage: 0.25 MG, DAILY, PO
     Route: 048
     Dates: start: 20000101, end: 20090428
  2. VI-QUES SYRUP [Concomitant]
  3. LASIX [Concomitant]
  4. COREG [Concomitant]
  5. LANTUS [Concomitant]
  6. DIOVAN [Concomitant]
  7. LIPITOR [Concomitant]
  8. ALLEGRA [Concomitant]
  9. XANAX [Concomitant]
  10. MULTI-VITAMIN [Concomitant]
  11. ASPIRIN [Concomitant]
  12. EFFEXOR [Concomitant]
  13. FLEXERIL [Concomitant]
  14. METANX [Concomitant]
  15. NIACIN [Concomitant]
  16. IBUPROFEN [Concomitant]
  17. ALDACTONE [Concomitant]
  18. PRILOSEC [Concomitant]
  19. COZAAR [Concomitant]
  20. CELEXA [Concomitant]
  21. HUMULIN R [Concomitant]
  22. OPTIVA [Concomitant]
  23. REFRESH [Concomitant]

REACTIONS (17)
  - ABDOMINAL PAIN [None]
  - ANXIETY [None]
  - ASTHENIA [None]
  - BLOOD GLUCOSE DECREASED [None]
  - COUGH [None]
  - DIARRHOEA [None]
  - DYSPNOEA [None]
  - FATIGUE [None]
  - HYPOTENSION [None]
  - MALAISE [None]
  - MULTIPLE INJURIES [None]
  - NAUSEA [None]
  - PAIN [None]
  - SYNCOPE [None]
  - THERAPEUTIC AGENT TOXICITY [None]
  - VOMITING [None]
  - WHITE BLOOD CELL COUNT INCREASED [None]
